FAERS Safety Report 7926908-8 (Version None)
Quarter: 2011Q4

REPORT INFORMATION
  Report Type: 
  Country: None (occurrence: None)
  Receive Date: 20111118
  Receipt Date: 20111115
  Transmission Date: 20120403
  Serious: Yes (Hospitalization)
  Sender: FDA-Public Use
  Company Number: JP-B.I. PHARMACEUTICALS,INC./RIDGEFIELD-2011-BP-26366NB

PATIENT
  Age: 89 Year
  Sex: Male

DRUGS (3)
  1. NORVASC [Concomitant]
     Indication: HYPERTENSION
     Dosage: 5 MG
     Route: 048
     Dates: start: 20020422, end: 20111114
  2. PERSANTIN [Suspect]
     Indication: MYOCARDIAL ISCHAEMIA
     Dosage: 75 MG
     Route: 048
     Dates: start: 20020422, end: 20111114
  3. BEZATOL SR [Concomitant]
     Route: 065
     Dates: start: 20020422, end: 20111114

REACTIONS (2)
  - CEREBELLAR HAEMORRHAGE [None]
  - MOUTH HAEMORRHAGE [None]
